FAERS Safety Report 5480377-9 (Version None)
Quarter: 2007Q4

REPORT INFORMATION
  Report Type: 
  Country: None (occurrence: None)
  Receive Date: 20071004
  Receipt Date: 20071004
  Transmission Date: 20080405
  Serious: Yes (Other)
  Sender: FDA-Public Use
  Company Number: None

PATIENT
  Age: 45 Year
  Sex: Female
  Weight: 61.2356 kg

DRUGS (3)
  1. XANAX [Suspect]
     Indication: ANXIETY
     Dosage: 0.125   BID  PO
     Route: 048
  2. XANAX [Suspect]
     Indication: DEPRESSION
     Dosage: 0.125   BID  PO
     Route: 048
  3. XANAX [Suspect]
     Dosage: 0.125 QID  PO
     Route: 048

REACTIONS (3)
  - DRUG DEPENDENCE [None]
  - DYSKINESIA [None]
  - TREMOR [None]
